FAERS Safety Report 15008844 (Version 9)
Quarter: 2021Q2

REPORT INFORMATION
  Report Type: Report from Study
  Country: JP (occurrence: JP)
  Receive Date: 20180613
  Receipt Date: 20210628
  Transmission Date: 20210716
  Serious: Yes (Life-Threatening, Hospitalization, Other)
  Sender: FDA-Public Use
  Company Number: JP-BIOGEN-2018BI00594083

PATIENT
  Age: 3 Month
  Sex: Male
  Weight: 4.14 kg

DRUGS (31)
  1. SPINRAZA [Suspect]
     Active Substance: NUSINERSEN
     Indication: SPINAL MUSCULAR ATROPHY
     Route: 050
     Dates: start: 20180320, end: 20180320
  2. EMLA [Concomitant]
     Active Substance: LIDOCAINE\PRILOCAINE
     Indication: ANAESTHESIA PROCEDURE
     Dosage: SMALL QUANTITY
     Route: 050
     Dates: start: 20180320, end: 20180320
  3. EMLA [Concomitant]
     Active Substance: LIDOCAINE\PRILOCAINE
     Dosage: SMALL QUANTITY
     Route: 050
     Dates: start: 20190122, end: 20190122
  4. EMLA [Concomitant]
     Active Substance: LIDOCAINE\PRILOCAINE
     Dosage: SMALL QUANTITY
     Route: 050
     Dates: start: 20190514, end: 20190514
  5. SOSEGON [Concomitant]
     Active Substance: PENTAZOCINE
     Dates: start: 20190910
  6. SPINRAZA [Suspect]
     Active Substance: NUSINERSEN
     Route: 050
     Dates: start: 20180522, end: 20180522
  7. EMLA [Concomitant]
     Active Substance: LIDOCAINE\PRILOCAINE
     Dosage: SMALL QUANTITY
     Route: 050
     Dates: start: 20180417, end: 20180417
  8. SPINRAZA [Suspect]
     Active Substance: NUSINERSEN
     Route: 050
     Dates: start: 20180403, end: 20180403
  9. EMLA [Concomitant]
     Active Substance: LIDOCAINE\PRILOCAINE
     Dosage: SMALL QUANTITY
     Route: 050
     Dates: start: 20180403, end: 20180403
  10. SPINRAZA [Suspect]
     Active Substance: NUSINERSEN
     Route: 050
     Dates: start: 20190910, end: 20190910
  11. SPINRAZA [Suspect]
     Active Substance: NUSINERSEN
     Route: 050
     Dates: start: 20200121
  12. SOSEGON [Concomitant]
     Active Substance: PENTAZOCINE
     Dates: start: 20190514, end: 20190514
  13. ATARAX?P [Concomitant]
     Active Substance: HYDROXYZINE HYDROCHLORIDE
     Dates: start: 20180911, end: 20180911
  14. MIDAZOLAM. [Concomitant]
     Active Substance: MIDAZOLAM
     Dates: start: 20190910
  15. SOSEGON [Concomitant]
     Active Substance: PENTAZOCINE
     Dates: start: 20190122, end: 20190122
  16. ATARAX?P [Concomitant]
     Active Substance: HYDROXYZINE HYDROCHLORIDE
     Indication: ANAESTHESIA PROCEDURE
     Dates: start: 20180522, end: 20180522
  17. ATARAX?P [Concomitant]
     Active Substance: HYDROXYZINE HYDROCHLORIDE
     Dates: start: 20190122, end: 20190122
  18. ATARAX?P [Concomitant]
     Active Substance: HYDROXYZINE HYDROCHLORIDE
     Dates: start: 20190910
  19. MIDAZOLAM. [Concomitant]
     Active Substance: MIDAZOLAM
     Indication: ANAESTHESIA PROCEDURE
     Dates: start: 20180911, end: 20180911
  20. MIDAZOLAM. [Concomitant]
     Active Substance: MIDAZOLAM
     Dates: start: 20190514, end: 20190514
  21. SPINRAZA [Suspect]
     Active Substance: NUSINERSEN
     Route: 050
     Dates: start: 20180911, end: 20180911
  22. SPINRAZA [Suspect]
     Active Substance: NUSINERSEN
     Route: 050
     Dates: start: 20190122, end: 20190122
  23. SPINRAZA [Suspect]
     Active Substance: NUSINERSEN
     Route: 050
     Dates: start: 20190514, end: 20190514
  24. EMLA [Concomitant]
     Active Substance: LIDOCAINE\PRILOCAINE
     Dosage: SMALL QUANTITY
     Route: 050
     Dates: start: 20180522, end: 20180522
  25. EMLA [Concomitant]
     Active Substance: LIDOCAINE\PRILOCAINE
     Dosage: SMALL QUANTITY
     Route: 050
     Dates: start: 20180911, end: 20180911
  26. EMLA [Concomitant]
     Active Substance: LIDOCAINE\PRILOCAINE
     Dosage: TOTAL DAILY DOSE WAS REPORTED AS UNKNOWN.
     Route: 050
     Dates: start: 20190910
  27. ATARAX?P [Concomitant]
     Active Substance: HYDROXYZINE HYDROCHLORIDE
     Dates: start: 20190514, end: 20190514
  28. SPINRAZA [Suspect]
     Active Substance: NUSINERSEN
     Route: 050
     Dates: start: 20180417, end: 20180417
  29. SOSEGON [Concomitant]
     Active Substance: PENTAZOCINE
     Indication: ANAESTHESIA PROCEDURE
     Dates: start: 20180522, end: 20180522
  30. SOSEGON [Concomitant]
     Active Substance: PENTAZOCINE
     Dates: start: 20180911, end: 20180911
  31. MIDAZOLAM. [Concomitant]
     Active Substance: MIDAZOLAM
     Dates: start: 20190122, end: 20190122

REACTIONS (3)
  - Laryngomalacia [Recovered/Resolved with Sequelae]
  - Throat tightness [Recovered/Resolved with Sequelae]
  - Pneumonia aspiration [Recovered/Resolved with Sequelae]

NARRATIVE: CASE EVENT DATE: 20180408
